FAERS Safety Report 8963532 (Version 2)
Quarter: 2013Q1

REPORT INFORMATION
  Report Type: Spontaneous
  Country: GR (occurrence: GR)
  Receive Date: 20121214
  Receipt Date: 20130112
  Transmission Date: 20140127
  Serious: No
  Sender: FDA-Public Use
  Company Number: GR-AMGEN-GRCSP2012080106

PATIENT
  Age: 60 Year
  Sex: Female

DRUGS (1)
  1. PROLIA [Suspect]
     Indication: OSTEOPOROSIS
     Dosage: 60 MG, Q6MO

REACTIONS (2)
  - Skin lesion [Unknown]
  - Petechiae [Unknown]
